FAERS Safety Report 15716548 (Version 6)
Quarter: 2019Q3

REPORT INFORMATION
  Report Type: Spontaneous
  Country: GB (occurrence: GB)
  Receive Date: 20181213
  Receipt Date: 20190705
  Transmission Date: 20191004
  Serious: Yes (Life-Threatening, Hospitalization, Congenital Anomaly, Other)
  Sender: FDA-Public Use
  Company Number: GB-AUROBINDO-AUR-APL-2014-11001

PATIENT

DRUGS (11)
  1. PARACETAMOL TABLET [Suspect]
     Active Substance: ACETAMINOPHEN
     Indication: PELVIC PAIN
     Dosage: UNK, FOUR TIMES/DAY
     Route: 064
  2. COCODAMOL [Suspect]
     Active Substance: ACETAMINOPHEN\CODEINE PHOSPHATE
     Indication: BACK DISORDER
     Dosage: (4), UNK, ONCE A DAY, UNK, 4X/DAY (QID)
     Route: 064
  3. METRONIDAZOLE. [Concomitant]
     Active Substance: METRONIDAZOLE
     Indication: PYELONEPHRITIS
     Dosage: UNK
     Route: 064
  4. COCODAMOL [Suspect]
     Active Substance: ACETAMINOPHEN\CODEINE PHOSPHATE
     Indication: PELVIC PAIN
     Dosage: (MATERNAL DOSE: UNKNOWN)
     Route: 064
  5. TYLEX (CODEINE PHOSPHATE\PARACETAMOL) [Suspect]
     Active Substance: ACETAMINOPHEN\CODEINE PHOSPHATE
     Indication: PELVIC PAIN
     Dosage: UNK
     Route: 064
  6. MORPHINE HYDROCHLORIDE [Concomitant]
     Active Substance: MORPHINE HYDROCHLORIDE
     Indication: PRODUCT USED FOR UNKNOWN INDICATION
     Dosage: UNK
     Route: 064
  7. ENOXAPARIN [Concomitant]
     Active Substance: ENOXAPARIN
     Indication: PRODUCT USED FOR UNKNOWN INDICATION
     Dosage: UNK
     Route: 064
  8. CEFRADINE [Concomitant]
     Active Substance: CEPHRADINE
     Indication: PYELONEPHRITIS
     Dosage: UNK
     Route: 064
  9. FLUOXETINE [Concomitant]
     Active Substance: FLUOXETINE HYDROCHLORIDE
     Indication: PRODUCT USED FOR UNKNOWN INDICATION
     Dosage: UNK
     Route: 064
  10. PARACETAMOL TABLET [Suspect]
     Active Substance: ACETAMINOPHEN
     Indication: FOETAL EXPOSURE DURING PREGNANCY
  11. PARACETAMOL TABLET [Suspect]
     Active Substance: ACETAMINOPHEN
     Indication: BACK DISORDER

REACTIONS (18)
  - Hepatotoxicity [Recovered/Resolved]
  - Dependence [Recovered/Resolved]
  - Malaise [Unknown]
  - Jaundice neonatal [Recovered/Resolved]
  - Foetal monitoring abnormal [Unknown]
  - Respiratory distress [Recovered/Resolved]
  - Developmental delay [Not Recovered/Not Resolved]
  - Aphasia [Unknown]
  - Gait inability [Unknown]
  - Overdose [Unknown]
  - Premature baby [Unknown]
  - Incubator therapy [Unknown]
  - Hepatic function abnormal [Recovered/Resolved]
  - Tremor [Unknown]
  - Drug withdrawal syndrome neonatal [Recovered/Resolved]
  - Foetal exposure during pregnancy [Recovered/Resolved with Sequelae]
  - Maternal exposure during pregnancy [Unknown]
  - Foetal arrhythmia [Recovered/Resolved]
